FAERS Safety Report 7394511 (Version 2)
Quarter: 2020Q3

REPORT INFORMATION
  Report Type: Report from Study
  Country: US (occurrence: US)
  Receive Date: 20100520
  Receipt Date: 20100629
  Transmission Date: 20201105
  Serious: Yes (Death)
  Sender: FDA-Public Use
  Company Number: US-ROCHE-703494

PATIENT

DRUGS (1)
  1. IBANDRONIC ACID. [Suspect]
     Active Substance: IBANDRONIC ACID
     Indication: BONE DENSITY DECREASED
     Route: 065
     Dates: end: 20100101

REACTIONS (1)
  - Dementia [Fatal]
